FAERS Safety Report 6790315-4 (Version None)
Quarter: 2010Q2

REPORT INFORMATION
  Report Type: 
  Country: None (occurrence: None)
  Receive Date: 20100624
  Receipt Date: 20100616
  Transmission Date: 20101027
  Serious: Yes (Hospitalization, Other)
  Sender: FDA-Public Use
  Company Number: US-BAXTER-2010BH015327

PATIENT
  Age: 68 Year
  Sex: Female
  Weight: 81 kg

DRUGS (14)
  1. GAMMAGARD LIQUID [Suspect]
     Indication: PERONEAL MUSCULAR ATROPHY
     Route: 042
     Dates: start: 20100512
  2. GAMMAGARD LIQUID [Suspect]
     Indication: OFF LABEL USE
     Route: 042
     Dates: start: 20100512
  3. GAMMAGARD LIQUID [Suspect]
     Route: 042
     Dates: start: 20080808
  4. GAMMAGARD LIQUID [Suspect]
     Route: 042
     Dates: start: 20080808
  5. ALBUTEROL [Concomitant]
     Route: 055
  6. OS-CAL [Concomitant]
  7. DIPHENHYDRAMINE HYDROCHLORIDE [Concomitant]
  8. ADVAIR DISKUS 100/50 [Concomitant]
  9. MULTI-VITAMINS [Concomitant]
  10. OMEGA-3 TRIGLYCERIDES [Concomitant]
  11. PROVENTIL [Concomitant]
  12. TIOTROPIUM BROMIDE [Concomitant]
  13. TYLENOL [Concomitant]
     Indication: PREMEDICATION
  14. DEXTROSE [Concomitant]
     Indication: PREMEDICATION

REACTIONS (6)
  - BACK PAIN [None]
  - CHILLS [None]
  - DIZZINESS [None]
  - HEADACHE [None]
  - NAUSEA [None]
  - VISUAL IMPAIRMENT [None]
